FAERS Safety Report 10245480 (Version 3)
Quarter: 2016Q1

REPORT INFORMATION
  Report Type: Spontaneous
  Country: JP (occurrence: JP)
  Receive Date: 20140618
  Receipt Date: 20160209
  Transmission Date: 20160525
  Serious: Yes (Other)
  Sender: FDA-Public Use
  Company Number: JP-BRISTOL-MYERS SQUIBB COMPANY-21059142

PATIENT
  Age: 37 Year
  Sex: Female

DRUGS (6)
  1. CLOMID [Concomitant]
     Active Substance: CLOMIPHENE CITRATE
     Indication: OVULATION DISORDER
     Dosage: 50 MG, QD
     Route: 048
     Dates: start: 20090709, end: 20101203
  2. METFORMIN HYDROCHLORIDE. [Suspect]
     Active Substance: METFORMIN HYDROCHLORIDE
     Indication: INSULIN RESISTANCE
     Dosage: 750 MG, QD
     Route: 048
     Dates: start: 20110725, end: 20120812
  3. CYCLOFENIL [Concomitant]
     Active Substance: CYCLOFENIL
     Indication: OVULATION DISORDER
     Dosage: 600 MG, QD
     Route: 048
     Dates: start: 20110228, end: 20110803
  4. MAGNESIUMOXIDE [Concomitant]
     Active Substance: MAGNESIUM OXIDE
     Indication: CONSTIPATION
     Dosage: 2.01 G, QD
     Route: 048
     Dates: start: 20101102, end: 20101201
  5. METFORMIN [Suspect]
     Active Substance: METFORMIN HYDROCHLORIDE
     Indication: INSULIN RESISTANCE
     Dosage: 500 MG, QD
     Route: 048
     Dates: start: 20070625, end: 20110724
  6. SUPRECUR [Concomitant]
     Active Substance: BUSERELIN
     Indication: OVULATION DISORDER
     Dosage: 1800 ?G, QD
     Route: 065
     Dates: start: 20120321, end: 20120421

REACTIONS (5)
  - Gestational diabetes [Recovered/Resolved]
  - Maternal exposure during pregnancy [Recovered/Resolved]
  - Depressive symptom [Unknown]
  - Off label use [Unknown]
  - Normal newborn [Recovered/Resolved]

NARRATIVE: CASE EVENT DATE: 20100528
